FAERS Safety Report 10082078 (Version 2)
Quarter: 2014Q2

REPORT INFORMATION
  Report Type: Spontaneous
  Country: US (occurrence: None)
  Receive Date: 20140414
  Receipt Date: 20140418
  Transmission Date: 20141212
  Serious: Yes (Hospitalization)
  Sender: FDA-Public Use
  Company Number: UTC-046749

PATIENT
  Age: 81 Year
  Sex: 0

DRUGS (3)
  1. REMODULIN [Suspect]
     Indication: COR PULMONALE CHRONIC
     Dosage: 8.64 UG/KG (0.006 UG/KG, 1 IN 1 MIN), SUBCUTANEOUS
     Route: 058
     Dates: start: 20140317
  2. LETAIRIS (AMBRISENTAN) (TABLET) (AMBRISENTAN) [Suspect]
     Indication: PRODUCT USED FOR UNKNOWN INDICATION
     Dates: start: 20110217
  3. ZOFRAN (ONDANSETRON) [Concomitant]

REACTIONS (11)
  - Vomiting [None]
  - Decreased appetite [None]
  - Paraesthesia [None]
  - Headache [None]
  - Pain in jaw [None]
  - Hypotension [None]
  - Infusion site erythema [None]
  - Nausea [None]
  - Pneumonia aspiration [None]
  - Cardiac failure [None]
  - Peripheral swelling [None]
